FAERS Safety Report 9840751 (Version 1)
Quarter: 2013Q4

REPORT INFORMATION
  Report Type: Spontaneous
  Country: JP (occurrence: None)
  Receive Date: 20131211
  Receipt Date: 20131211
  Transmission Date: 20140711
  Serious: Yes (Hospitalization)
  Sender: FDA-Public Use
  Company Number: ALL1-2012-06570

PATIENT
  Age: 78 Year
  Sex: Male

DRUGS (13)
  1. FOSRENOL [Suspect]
     Indication: HYPERPHOSPHATAEMIA
     Dosage: OTHER (IMMEDIATEYLY AFTER MEALS)
     Route: 048
     Dates: start: 20090513, end: 20090709
  2. TANKARU [Concomitant]
  3. ALFAROL [Concomitant]
  4. OXAROL [Concomitant]
  5. FERO GRADUMET [Concomitant]
  6. MOBIC [Concomitant]
  7. ADALAT CR [Concomitant]
  8. BLOPRESS [Concomitant]
  9. ASPARA K [Concomitant]
  10. IRBETAN [Concomitant]
  11. METHYLCOBAL [Concomitant]
  12. NEOPHYLLIN [Concomitant]
  13. MYSLEE [Concomitant]

REACTIONS (3)
  - Vomiting [None]
  - Nausea [None]
  - Constipation [None]
